FAERS Safety Report 7034612-6 (Version None)
Quarter: 2010Q4

REPORT INFORMATION
  Report Type: 
  Country: None (occurrence: None)
  Receive Date: 20101008
  Receipt Date: 20100928
  Transmission Date: 20110411
  Serious: Yes (Other)
  Sender: FDA-Public Use
  Company Number: US-CELGENEUS-163-21880-10072586

PATIENT
  Sex: Male
  Weight: 91.8 kg

DRUGS (11)
  1. REVLIMID [Suspect]
     Route: 048
     Dates: start: 20100603, end: 20100623
  2. REVLIMID [Suspect]
     Route: 048
     Dates: start: 20100701, end: 20100721
  3. COREG CR [Concomitant]
     Indication: HYPERTENSION
     Route: 048
  4. LISINOPRIL [Concomitant]
     Indication: HYPERTENSION
     Route: 048
  5. CRESTOR [Concomitant]
     Route: 048
  6. ZANTAC [Concomitant]
     Indication: PRODUCT USED FOR UNKNOWN INDICATION
     Route: 065
  7. FISH OIL [Concomitant]
     Indication: PRODUCT USED FOR UNKNOWN INDICATION
     Route: 048
  8. ALEVE (CAPLET) [Concomitant]
     Indication: PAIN
     Route: 048
  9. ASPIRIN [Concomitant]
     Route: 048
  10. MULTIVITAMIN ESSENTIALS [Concomitant]
     Indication: PRODUCT USED FOR UNKNOWN INDICATION
     Route: 065
  11. PROPRANOLOL [Concomitant]
     Indication: TACHYCARDIA
     Route: 065
     Dates: start: 20100804

REACTIONS (2)
  - HYPERTHYROIDISM [None]
  - WHITE BLOOD CELL COUNT DECREASED [None]
